FAERS Safety Report 17515645 (Version 1)
Quarter: 2020Q1

REPORT INFORMATION
  Report Type: Spontaneous
  Country: US (occurrence: US)
  Receive Date: 20200309
  Receipt Date: 20200309
  Transmission Date: 20200409
  Serious: Yes (Other)
  Sender: FDA-Public Use
  Company Number: NVSC2020US061152

PATIENT
  Sex: Female
  Weight: 40.82 kg

DRUGS (3)
  1. LETROZOLE. [Suspect]
     Active Substance: LETROZOLE
     Indication: BREAST CANCER METASTATIC
     Dosage: 2.5 UNK, QD
     Route: 065
     Dates: start: 201612
  2. IBRANCE [Suspect]
     Active Substance: PALBOCICLIB
     Indication: BREAST CANCER METASTATIC
     Dosage: 75 MG (DAILY 3 WEEKS ON DAILY OFF)
     Route: 065
     Dates: start: 20170215
  3. XGEVA [Suspect]
     Active Substance: DENOSUMAB
     Indication: RESORPTION BONE INCREASED
     Dosage: QMO
     Route: 065
     Dates: start: 201702

REACTIONS (8)
  - Alopecia [Not Recovered/Not Resolved]
  - Pain [Recovered/Resolved]
  - Nasopharyngitis [Recovered/Resolved]
  - Escherichia urinary tract infection [Recovered/Resolved]
  - Fatigue [Recovered/Resolved]
  - Bladder disorder [Unknown]
  - White blood cell count decreased [Recovered/Resolved]
  - Jaundice [Recovered/Resolved]
